FAERS Safety Report 11598922 (Version 2)
Quarter: 2015Q4

REPORT INFORMATION
  Report Type: Report from Study
  Country: NO (occurrence: NO)
  Receive Date: 20151006
  Receipt Date: 20151217
  Transmission Date: 20160304
  Serious: Yes (Death, Other)
  Sender: FDA-Public Use
  Company Number: NO-AMGEN-NORCT2015090596

PATIENT
  Age: 3 Year
  Sex: Male

DRUGS (4)
  1. BLINATUMOMAB [Suspect]
     Active Substance: BLINATUMOMAB
     Indication: BONE MARROW FAILURE
     Dosage: 5 MUG/M2, QD
     Route: 042
     Dates: start: 20150822, end: 20150917
  2. AMBISOME [Concomitant]
     Active Substance: AMPHOTERICIN B
     Dosage: 3 MG/KG, UNK
     Dates: start: 20150907, end: 20150912
  3. VFEND [Concomitant]
     Active Substance: VORICONAZOLE
     Indication: ASPERGILLUS INFECTION
  4. CANCIDAS [Concomitant]
     Active Substance: CASPOFUNGIN ACETATE
     Indication: ASPERGILLUS INFECTION
     Dosage: UNK

REACTIONS (17)
  - Hyperhidrosis [Not Recovered/Not Resolved]
  - Fatigue [Not Recovered/Not Resolved]
  - Pyrexia [Not Recovered/Not Resolved]
  - Hypertension [Recovered/Resolved]
  - Cough [Not Recovered/Not Resolved]
  - Tachycardia [Not Recovered/Not Resolved]
  - Disease progression [Fatal]
  - Blood fibrinogen increased [Unknown]
  - Cholangitis [Unknown]
  - Myalgia [Not Recovered/Not Resolved]
  - Eye oedema [Recovered/Resolved]
  - Headache [Recovered/Resolved]
  - Activated partial thromboplastin time prolonged [Unknown]
  - Chills [Recovered/Resolved]
  - Transaminases increased [Unknown]
  - C-reactive protein increased [Unknown]
  - Vomiting [Not Recovered/Not Resolved]

NARRATIVE: CASE EVENT DATE: 20150822
